FAERS Safety Report 6976381-1 (Version None)
Quarter: 2010Q3

REPORT INFORMATION
  Report Type: 
  Country: None (occurrence: None)
  Receive Date: 20100910
  Receipt Date: 20100831
  Transmission Date: 20110219
  Serious: Yes (Other)
  Sender: FDA-Public Use
  Company Number: JP-PFIZER INC-2010113925

PATIENT
  Age: 61 Year
  Sex: Female
  Weight: 54 kg

DRUGS (8)
  1. CAMPTOSAR [Suspect]
     Indication: COLORECTAL CANCER
     Dosage: 229.5 MG, (150 MG/M2)
     Route: 041
     Dates: start: 20100105, end: 20100118
  2. CAMPTOSAR [Suspect]
     Dosage: 183.6 MG, (120 MG/M2)
     Route: 041
     Dates: start: 20100201, end: 20100215
  3. CALCIUM LEVOFOLINATE [Concomitant]
     Indication: COLORECTAL CANCER
     Dosage: 306 MG, (200 MG/M2)
     Route: 041
     Dates: start: 20100105, end: 20100215
  4. FLUOROURACIL [Concomitant]
     Indication: COLORECTAL CANCER
     Dosage: 612 MG, (400 MG/M2)
     Route: 040
     Dates: start: 20100105, end: 20100118
  5. FLUOROURACIL [Concomitant]
     Dosage: 3672 MG, (2400 MG/M2)
     Route: 041
     Dates: start: 20100105, end: 20100118
  6. FLUOROURACIL [Concomitant]
     Dosage: 459 MG, (300 MG/M2)
     Route: 040
     Dates: start: 20100201, end: 20100215
  7. FLUOROURACIL [Concomitant]
     Dosage: 3060 MG, (2000 MG/M2)
     Route: 041
     Dates: start: 20100201, end: 20100215
  8. AVASTIN [Concomitant]
     Indication: COLORECTAL CANCER
     Dosage: 550 MG, UNK
     Route: 041
     Dates: start: 20100105, end: 20100215

REACTIONS (1)
  - NEUROPATHY PERIPHERAL [None]
